FAERS Safety Report 24605996 (Version 4)
Quarter: 2025Q3

REPORT INFORMATION
  Report Type: Report from Study
  Country: US (occurrence: US)
  Receive Date: 20241111
  Receipt Date: 20250920
  Transmission Date: 20251021
  Serious: Yes (Other)
  Sender: UCB
  Company Number: US-UCBSA-2024057367

PATIENT
  Age: 11 Year
  Sex: Male
  Weight: 30.4 kg

DRUGS (7)
  1. FINTEPLA [Suspect]
     Active Substance: FENFLURAMINE
     Indication: Lennox-Gastaut syndrome
     Dates: start: 20240208
  2. FINTEPLA [Suspect]
     Active Substance: FENFLURAMINE
     Indication: Craniocerebral injury
  3. FINTEPLA [Suspect]
     Active Substance: FENFLURAMINE
     Indication: Loss of consciousness
  4. FINTEPLA [Suspect]
     Active Substance: FENFLURAMINE
     Indication: Muscle spasticity
  5. FINTEPLA [Suspect]
     Active Substance: FENFLURAMINE
     Indication: Off label use
  6. CANNABIDIOL [Concomitant]
     Active Substance: CANNABIDIOL
     Indication: Product used for unknown indication
  7. FLUOXETINE [Concomitant]
     Active Substance: FLUOXETINE HYDROCHLORIDE
     Indication: Product used for unknown indication

REACTIONS (3)
  - Tricuspid valve incompetence [Not Recovered/Not Resolved]
  - Pulmonary valve incompetence [Not Recovered/Not Resolved]
  - Off label use [Unknown]

NARRATIVE: CASE EVENT DATE: 20240228
